FAERS Safety Report 4743807-3 (Version None)
Quarter: 2005Q3

REPORT INFORMATION
  Report Type: 
  Country: None (occurrence: None)
  Receive Date: 20050809
  Receipt Date: 20050506
  Transmission Date: 20060218
  Serious: Yes (Hospitalization)
  Sender: FDA-Public Use
  Company Number: 2005FR-00176

PATIENT
  Age: 42 Year
  Sex: Male

DRUGS (12)
  1. ASPIRIN [Suspect]
     Indication: BEHCET'S SYNDROME
     Dosage: 75 MG OD
     Route: 048
     Dates: start: 20050404, end: 20050418
  2. CELLCEPT [Suspect]
     Indication: BEHCET'S SYNDROME
     Dosage: 1 GM BD TO 1 GM TDS
     Route: 048
     Dates: start: 20031101, end: 20050418
  3. PREDNISOLONE [Suspect]
     Dosage: 30 MG OD
     Route: 048
  4. ALENDRONATE [Concomitant]
  5. NIFEDIPINE [Concomitant]
  6. DOTHIEPIN HYDROCHLORIDE [Concomitant]
  7. LANSOPRAZOLE [Concomitant]
  8. BENDROFLUMETHIAZIDE [Concomitant]
  9. LAMOTRIGINE [Concomitant]
  10. DOXAZOSIN [Concomitant]
  11. TRAMADOL HCL [Concomitant]
  12. PERINDOPRIL [Concomitant]

REACTIONS (3)
  - DIARRHOEA HAEMORRHAGIC [None]
  - GASTRITIS [None]
  - GASTROINTESTINAL HAEMORRHAGE [None]
